FAERS Safety Report 19825791 (Version 2)
Quarter: 2021Q3

REPORT INFORMATION
  Report Type: Spontaneous
  Country: NL (occurrence: NL)
  Receive Date: 20210914
  Receipt Date: 20210921
  Transmission Date: 20211014
  Serious: Yes (Other)
  Sender: FDA-Public Use
  Company Number: NL-AUROBINDO-AUR-APL-2021-038732

PATIENT
  Sex: Female
  Weight: 73.8 kg

DRUGS (2)
  1. BECLOMETASONE;FENOTEROL [Concomitant]
     Indication: PRODUCT USED FOR UNKNOWN INDICATION
     Dosage: AEROSOL, 100/6 ?G/DOSIS (MICROGRAM PER DOSIS)
     Route: 065
  2. LOSARTAN FILM?COATED TABLETS 50MG [Suspect]
     Active Substance: LOSARTAN
     Indication: HYPERTENSION
     Dosage: 50 MILLIGRAM, ONCE A DAY (1X PER DAG 1 STUK)
     Route: 065
     Dates: start: 20210603, end: 20210820

REACTIONS (1)
  - Cardiac failure [Recovered/Resolved]
